FAERS Safety Report 13957675 (Version 1)
Quarter: 2017Q3

REPORT INFORMATION
  Report Type: Spontaneous
  Country: US (occurrence: US)
  Receive Date: 20170911
  Receipt Date: 20170911
  Transmission Date: 20171128
  Serious: No
  Sender: FDA-Public Use
  Company Number: US-ROCHE-1104079

PATIENT

DRUGS (4)
  1. WINRHO [Concomitant]
     Active Substance: HUMAN RHO(D) IMMUNE GLOBULIN
  2. PREDNISONE. [Concomitant]
     Active Substance: PREDNISONE
  3. RITUXAN [Suspect]
     Active Substance: RITUXIMAB
     Indication: THROMBOCYTOPENIA
     Route: 065
  4. DANAZOL. [Concomitant]
     Active Substance: DANAZOL
     Dosage: RECEIVED ON 08/MAR/2002, 15/MAR/2002, 22/MAR/2002 AD 29/MAR/2002
     Route: 065

REACTIONS (1)
  - Drug ineffective [Unknown]
